FAERS Safety Report 6585354-2 (Version None)
Quarter: 2010Q1

REPORT INFORMATION
  Report Type: 
  Country: None (occurrence: None)
  Receive Date: 20100201
  Receipt Date: 20090327
  Transmission Date: 20100710
  Serious: Yes (Other)
  Sender: FDA-Public Use
  Company Number: 8044376

PATIENT
  Sex: Female
  Weight: 75.7 kg

DRUGS (2)
  1. KEPPRA [Suspect]
     Indication: CONVULSION
     Dosage: 1000 MG BID ORAL
     Route: 048
     Dates: start: 20081126, end: 20090129
  2. ASPIRIN [Concomitant]

REACTIONS (4)
  - AGGRESSION [None]
  - DEPRESSED MOOD [None]
  - FATIGUE [None]
  - SUICIDAL IDEATION [None]
